FAERS Safety Report 17501183 (Version 1)
Quarter: 2020Q1

REPORT INFORMATION
  Report Type: Spontaneous
  Country: DE (occurrence: DE)
  Receive Date: 20200305
  Receipt Date: 20200305
  Transmission Date: 20200409
  Serious: Yes (Other)
  Sender: FDA-Public Use
  Company Number: DE-PFIZER INC-2020095158

PATIENT
  Age: 6 Decade
  Sex: Female
  Weight: 80 kg

DRUGS (3)
  1. CLINDAMYCIN RATIOPHARM [Suspect]
     Active Substance: CLINDAMYCIN PHOSPHATE
     Dosage: 2400 MG, 1X/DAY
     Route: 042
     Dates: end: 20200123
  2. CLINDAMYCIN HCL [Suspect]
     Active Substance: CLINDAMYCIN HYDROCHLORIDE
     Dosage: UNK
     Route: 048
     Dates: start: 20191110, end: 2019
  3. PENICILLINE [BENZYLPENICILLIN SODIUM] [Suspect]
     Active Substance: PENICILLIN G SODIUM
     Dosage: UNK (INTAKE FOR 5 DAYS COMBINED WITH INTRAVENOUS CLINDAMYCIN)

REACTIONS (8)
  - Taste disorder [Unknown]
  - Visual impairment [Unknown]
  - Atrioventricular block complete [Recovered/Resolved]
  - Tongue discolouration [Recovered/Resolved]
  - Vomiting [Unknown]
  - Diarrhoea [Unknown]
  - Nausea [Unknown]
  - Bradycardia [Unknown]

NARRATIVE: CASE EVENT DATE: 20200121
